FAERS Safety Report 25240797 (Version 2)
Quarter: 2025Q2

REPORT INFORMATION
  Report Type: Report from Study
  Country: CA (occurrence: CA)
  Receive Date: 20250425
  Receipt Date: 20250520
  Transmission Date: 20250716
  Serious: Yes (Death, Other)
  Sender: IPSEN BIOPHARMACEUTICALS, INC.
  Company Number: CA-IPSEN Group, Research and Development-2025-09628

PATIENT
  Age: 66 Year
  Sex: Male
  Weight: 83 kg

DRUGS (11)
  1. LANREOTIDE ACETATE [Suspect]
     Active Substance: LANREOTIDE ACETATE
     Indication: Carcinoid syndrome
     Dosage: DEEP SUBCUTANEOUS
     Route: 058
     Dates: start: 20230314
  2. SANDOSTATIN LAR DEPOT [Concomitant]
     Active Substance: OCTREOTIDE ACETATE
  3. TENOFOVIR [Concomitant]
     Active Substance: TENOFOVIR
     Dosage: 1 CO DIE
  4. ALLOPURINOL [Concomitant]
     Active Substance: ALLOPURINOL
     Dosage: 1 CO DIE
  5. ONDANSETRON [Concomitant]
     Active Substance: ONDANSETRON
     Indication: Nausea
  6. TYLENOL [Concomitant]
     Active Substance: ACETAMINOPHEN
     Dosage: TYLENOL4- 300MG/60 MG TID
  7. IMOVANE [Concomitant]
     Active Substance: ZOPICLONE
     Dosage: 7.5 MH 1 ?CO DIE
  8. CHOLECALCIFEROL [Concomitant]
     Active Substance: CHOLECALCIFEROL
     Dosage: 1 CO DIE
  9. OCTREOTIDE [Concomitant]
     Active Substance: OCTREOTIDE
  10. TIAZAC [Concomitant]
     Active Substance: DILTIAZEM HYDROCHLORIDE
  11. METFORMIN [Concomitant]
     Active Substance: METFORMIN HYDROCHLORIDE

REACTIONS (2)
  - Multiple organ dysfunction syndrome [Fatal]
  - Off label use [Unknown]

NARRATIVE: CASE EVENT DATE: 20230314
